FAERS Safety Report 7481679-7 (Version None)
Quarter: 2011Q2

REPORT INFORMATION
  Report Type: 
  Country: None (occurrence: None)
  Receive Date: 20110516
  Receipt Date: 20110510
  Transmission Date: 20111010
  Serious: Yes (Other)
  Sender: FDA-Public Use
  Company Number: GB-ROCHE-776726

PATIENT

DRUGS (2)
  1. CLONAZEPAM [Suspect]
     Route: 065
  2. MADOPAR [Suspect]
     Indication: PARKINSONISM
     Route: 065

REACTIONS (2)
  - PARKINSONISM [None]
  - DRUG INEFFECTIVE [None]
